FAERS Safety Report 7467776-0 (Version None)
Quarter: 2011Q2

REPORT INFORMATION
  Report Type: 
  Country: None (occurrence: None)
  Receive Date: 20110509
  Receipt Date: 20110429
  Transmission Date: 20111010
  Serious: Yes (Hospitalization)
  Sender: FDA-Public Use
  Company Number: US-ASTRAZENECA-2011SE21586

PATIENT
  Age: 57 Year
  Sex: Female

DRUGS (3)
  1. SYMBICORT [Suspect]
     Route: 055
  2. LUNG CLEANSE [Concomitant]
  3. OXYGEN [Concomitant]

REACTIONS (4)
  - CYANOSIS [None]
  - ALVEOLITIS ALLERGIC [None]
  - BIOPSY LUNG [None]
  - GAIT DISTURBANCE [None]
